FAERS Safety Report 13549606 (Version 1)
Quarter: 2017Q2

REPORT INFORMATION
  Report Type: Other
  Country: DE (occurrence: DE)
  Receive Date: 20170516
  Receipt Date: 20170516
  Transmission Date: 20170830
  Serious: Yes (Hospitalization, Other)
  Sender: FDA-Public Use
  Company Number: DE-CLARIS PHARMASERVICES-2020800

PATIENT
  Age: 80 Year
  Sex: Female
  Weight: 70 kg

DRUGS (6)
  1. METOPROLOLSUCCINAT [Concomitant]
     Active Substance: METOPROLOL SUCCINATE
  2. CIPROFLOXACIN. [Suspect]
     Active Substance: CIPROFLOXACIN
     Indication: URINARY TRACT INFECTION
     Route: 048
     Dates: start: 20170309, end: 20170312
  3. CANDESARTAN/HYDROCHLOROTHIAZID 16 MG/12.5 MG [Concomitant]
     Route: 048
  4. DEKRISTOL 20000 [Concomitant]
     Active Substance: CHOLECALCIFEROL
     Route: 048
     Dates: start: 20170210
  5. SIMVASTATIN. [Concomitant]
     Active Substance: SIMVASTATIN
  6. TOLTERODIN [Concomitant]
     Active Substance: TOLTERODINE TARTRATE
     Route: 048

REACTIONS (1)
  - Transient global amnesia [Recovered/Resolved]

NARRATIVE: CASE EVENT DATE: 20170311
